FAERS Safety Report 9432636 (Version 2)
Quarter: 2013Q3

REPORT INFORMATION
  Report Type: Spontaneous
  Country: JP (occurrence: JP)
  Receive Date: 20130731
  Receipt Date: 20130826
  Transmission Date: 20140515
  Serious: Yes (Other)
  Sender: FDA-Public Use
  Company Number: PHHY2013JP079811

PATIENT
  Age: 83 Year
  Sex: Female
  Weight: 39 kg

DRUGS (11)
  1. EXELON PATCH [Suspect]
     Indication: DEMENTIA ALZHEIMER^S TYPE
     Dosage: 4.5 MG, DAILY
     Route: 062
     Dates: start: 20120827, end: 20120920
  2. EXELON PATCH [Suspect]
     Dosage: 9 MG, DAILY
     Route: 062
     Dates: start: 20120921, end: 20121018
  3. EXELON PATCH [Suspect]
     Dosage: 13.5 MG, DAILY
     Route: 062
     Dates: start: 20121019, end: 20121204
  4. PREDNISOLONE [Concomitant]
     Indication: SPONDYLITIS
     Dosage: 3 MG, UNK
     Route: 048
  5. BLOPRESS [Concomitant]
     Indication: HYPERTENSION
     Dosage: 8 MG, UNK
     Route: 048
  6. GASTER D [Concomitant]
     Indication: ABDOMINAL PAIN UPPER
     Dosage: 20 MG, UNK
     Route: 048
  7. MERISLON [Concomitant]
     Indication: DIZZINESS
     Dosage: 12 MG, UNK
     Route: 048
  8. HYPEN [Concomitant]
     Dosage: 400 MG, UNK
     Route: 048
  9. MUCOSTA [Concomitant]
     Indication: ABDOMINAL PAIN UPPER
     Dosage: 200 MG, UNK
     Route: 048
  10. LIPITOR [Concomitant]
     Indication: HYPERLIPIDAEMIA
     Dosage: 10 MG, UNK
     Route: 048
  11. METHOTREXATE [Concomitant]
     Indication: SPONDYLITIS
     Dosage: 6 MG, UNK
     Route: 048

REACTIONS (2)
  - Blood cholinesterase decreased [Recovered/Resolved]
  - Decreased appetite [Recovered/Resolved]
